FAERS Safety Report 9468395 (Version 1)
Quarter: 2013Q3

REPORT INFORMATION
  Report Type: Spontaneous
  Country: BR (occurrence: BR)
  Receive Date: 20130821
  Receipt Date: 20130821
  Transmission Date: 20140515
  Serious: Yes (Hospitalization)
  Sender: FDA-Public Use
  Company Number: PHHY2013BR087939

PATIENT
  Age: 45 Year
  Sex: Female

DRUGS (2)
  1. THIAMAZOLE [Suspect]
     Indication: HYPERTHYROIDISM
     Dosage: 40 MG, PER DAY
  2. THIAMAZOLE [Suspect]
     Dosage: 60 MG/DAY

REACTIONS (6)
  - Psychotic disorder [Recovered/Resolved]
  - Agitation [Recovered/Resolved]
  - Insomnia [Recovered/Resolved]
  - Delusion [Recovered/Resolved]
  - Hypothyroidism [Recovering/Resolving]
  - Goitre [Recovering/Resolving]
